FAERS Safety Report 6275870-5 (Version None)
Quarter: 2009Q3

REPORT INFORMATION
  Report Type: 
  Country: None (occurrence: None)
  Receive Date: 20090721
  Receipt Date: 20090706
  Transmission Date: 20100115
  Serious: Yes (Death, Life-Threatening, Hospitalization, Other)
  Sender: FDA-Public Use
  Company Number: DE-GENENTECH-283438

PATIENT
  Sex: Male

DRUGS (3)
  1. AVASTIN [Suspect]
     Indication: BRONCHIAL CARCINOMA
     Dosage: 15 MG/KG, UNK
     Route: 042
     Dates: start: 20081101, end: 20090401
  2. CARBOPLATIN [Concomitant]
     Indication: DRUG USE FOR UNKNOWN INDICATION
     Dosage: UNK
     Dates: start: 20081101, end: 20090401
  3. GEMCITABINE [Concomitant]
     Indication: DRUG USE FOR UNKNOWN INDICATION
     Dosage: UNK
     Dates: start: 20081101, end: 20090301

REACTIONS (10)
  - BREAST PAIN [None]
  - DYSPHAGIA [None]
  - DYSPNOEA EXERTIONAL [None]
  - HYPERTENSIVE CRISIS [None]
  - HYPOKALAEMIA [None]
  - NEPHROTIC SYNDROME [None]
  - PNEUMONIA [None]
  - PULMONARY CONGESTION [None]
  - REFUSAL OF TREATMENT BY PATIENT [None]
  - RENAL FAILURE [None]
